FAERS Safety Report 9959335 (Version 1)
Quarter: 2014Q1

REPORT INFORMATION
  Report Type: Spontaneous
  Country: US (occurrence: None)
  Receive Date: 20140228
  Receipt Date: 20140228
  Transmission Date: 20141002
  Serious: Yes (Death)
  Sender: FDA-Public Use
  Company Number: 2014-US-002177

PATIENT
  Age: 62 Year
  Sex: Male

DRUGS (2)
  1. FAZACLO ODT (CLOZAPINE) TABLET, 100MG [Suspect]
     Indication: SCHIZOPHRENIA, PARANOID TYPE
     Route: 048
  2. RISPERDAL CONSTA [Concomitant]

REACTIONS (1)
  - Death [None]
